FAERS Safety Report 4641214-5 (Version None)
Quarter: 2005Q2

REPORT INFORMATION
  Report Type: 
  Country: None (occurrence: None)
  Receive Date: 20050420
  Receipt Date: 20050420
  Transmission Date: 20051028
  Serious: No
  Sender: FDA-Public Use
  Company Number: None

PATIENT
  Sex: Male
  Weight: 97.0698 kg

DRUGS (1)
  1. CYPHER STENT        J + J CORDIS [Suspect]
     Dates: start: 20050404, end: 20050404

REACTIONS (1)
  - PHARMACEUTICAL PRODUCT COMPLAINT [None]
